FAERS Safety Report 9205358 (Version 1)
Quarter: 2013Q2

REPORT INFORMATION
  Report Type: Spontaneous
  Country: ES (occurrence: ES)
  Receive Date: 20130402
  Receipt Date: 20130402
  Transmission Date: 20140414
  Serious: Yes (Hospitalization)
  Sender: FDA-Public Use
  Company Number: ES-009507513-1304ESP000226

PATIENT
  Age: 43 Year
  Sex: Female

DRUGS (5)
  1. PUREGON [Suspect]
     Dosage: 1AMP
     Route: 058
     Dates: start: 20111215, end: 20111229
  2. GONAL-F [Interacting]
     Dosage: 1/2AMP, INDICATION: ASSISTED REPRODUCTION
     Route: 058
     Dates: start: 20111121, end: 20111205
  3. OVITRELLE [Interacting]
     Dosage: 1 AMP, ONE DOSE ON 07 DEC AND ANOTHER ONE ON 31 DEC
     Route: 058
     Dates: start: 20111207, end: 20111231
  4. PROGEFFIK [Interacting]
     Dosage: 1
     Route: 067
     Dates: start: 20120102, end: 20120918
  5. PLANTABEN [Concomitant]
     Dosage: 1
     Route: 048
     Dates: start: 2010, end: 20120918

REACTIONS (2)
  - Cholestasis of pregnancy [Recovered/Resolved]
  - Exposure during pregnancy [None]
